FAERS Safety Report 4702653-7 (Version None)
Quarter: 2005Q2

REPORT INFORMATION
  Report Type: 
  Country: None (occurrence: None)
  Receive Date: 20050629
  Receipt Date: 20040908
  Transmission Date: 20051028
  Serious: No
  Sender: FDA-Public Use
  Company Number: US-GLAXOSMITHKLINE-A0525192A

PATIENT
  Age: 66 Year
  Sex: Female

DRUGS (3)
  1. ZYBAN [Suspect]
     Route: 048
     Dates: start: 19930101
  2. UNKNOWN MEDICATION [Concomitant]
  3. UNKNOWN MEDICATION [Concomitant]
     Indication: BLOOD CHOLESTEROL DECREASED

REACTIONS (6)
  - DEPRESSION [None]
  - GASTRIC DISORDER [None]
  - HEART RATE INCREASED [None]
  - PRURITUS [None]
  - RASH [None]
  - URTICARIA [None]
